FAERS Safety Report 12191655 (Version 2)
Quarter: 2016Q2

REPORT INFORMATION
  Report Type: Spontaneous
  Country: GB (occurrence: GB)
  Receive Date: 20160318
  Receipt Date: 20160603
  Transmission Date: 20160815
  Serious: Yes (Death, Hospitalization, Other)
  Sender: FDA-Public Use
  Company Number: GB-FRESENIUS KABI-FK201601378

PATIENT
  Age: 56 Year
  Sex: Male
  Weight: 72 kg

DRUGS (10)
  1. CARBOPLATIN (MANUFACTURER UNKNOWN) [Suspect]
     Active Substance: CARBOPLATIN
     Route: 062
     Dates: start: 20150319
  2. FOLIC ACID. [Suspect]
     Active Substance: FOLIC ACID
     Dates: start: 20150203
  3. VITAMIN B12 [Concomitant]
     Active Substance: CYANOCOBALAMIN
     Dates: start: 20150203
  4. ALIMTA [Suspect]
     Active Substance: PEMETREXED DISODIUM
     Indication: LUNG ADENOCARCINOMA STAGE IV
     Route: 042
     Dates: start: 20150209
  5. XALKORI [Suspect]
     Active Substance: CRIZOTINIB
     Indication: CEREBRAL DISORDER
  6. XALKORI [Suspect]
     Active Substance: CRIZOTINIB
     Indication: EPILEPSY
     Route: 048
     Dates: start: 20150318, end: 20150330
  7. CARBOPLATIN (MANUFACTURER UNKNOWN) [Suspect]
     Active Substance: CARBOPLATIN
     Indication: LUNG ADENOCARCINOMA STAGE IV
     Route: 042
     Dates: start: 20150209
  8. ALIMTA [Suspect]
     Active Substance: PEMETREXED DISODIUM
     Route: 042
     Dates: start: 20150302
  9. CARBOPLATIN (MANUFACTURER UNKNOWN) [Suspect]
     Active Substance: CARBOPLATIN
     Route: 042
     Dates: start: 20150302
  10. ALIMTA [Suspect]
     Active Substance: PEMETREXED DISODIUM
     Route: 042
     Dates: start: 20150319, end: 20150319

REACTIONS (6)
  - Malignant neoplasm progression [Unknown]
  - Respiratory failure [Fatal]
  - Lymphangiosis carcinomatosa [Unknown]
  - Bone marrow failure [Unknown]
  - Bronchopulmonary aspergillosis [Fatal]
  - Cerebral aspergillosis [Fatal]

NARRATIVE: CASE EVENT DATE: 201501
